FAERS Safety Report 5591419-4 (Version None)
Quarter: 2008Q1

REPORT INFORMATION
  Report Type: 
  Country: None (occurrence: None)
  Receive Date: 20080111
  Receipt Date: 20080111
  Transmission Date: 20080703
  Serious: No
  Sender: FDA-Public Use
  Company Number: None

PATIENT
  Age: 71 Year
  Sex: Male
  Weight: 57.15 kg

DRUGS (1)
  1. VARENICLINE [Suspect]
     Dosage: 0.5MG EVERY DAY PO
     Route: 048
     Dates: start: 20070926, end: 20071008

REACTIONS (8)
  - ABDOMINAL PAIN [None]
  - ABNORMAL DREAMS [None]
  - DIARRHOEA [None]
  - DIZZINESS [None]
  - DRY MOUTH [None]
  - INSOMNIA [None]
  - NAUSEA [None]
  - VOMITING [None]
